FAERS Safety Report 4286926-0 (Version None)
Quarter: 2004Q1

REPORT INFORMATION
  Report Type: 
  Country: None (occurrence: None)
  Receive Date: 20040204
  Receipt Date: 20040122
  Transmission Date: 20041129
  Serious: Yes (Other)
  Sender: FDA-Public Use
  Company Number: US-JNJFOC-20040104577

PATIENT
  Age: 63 Year
  Sex: Female
  Weight: 64.4108 kg

DRUGS (11)
  1. REMICADE [Suspect]
     Indication: RHEUMATOID ARTHRITIS
     Dosage: 400 MG, 1 IN 1 DAY, INTRAVENOUS
     Route: 042
     Dates: start: 20010201, end: 20031006
  2. METHOTREXATE SODIUM [Concomitant]
  3. AREDIA [Concomitant]
  4. FOLIC ACID [Concomitant]
  5. BEXTRA [Concomitant]
  6. ZYRTEC [Concomitant]
  7. ACETYLSALICYLIC ACID SRT [Concomitant]
  8. LORTAB [Concomitant]
  9. NEXIUM [Concomitant]
  10. SKELEXIN (ALL OTHER THERAPEUTIC PRODUCTS) [Concomitant]
  11. SPIRONOLACTONE [Concomitant]

REACTIONS (2)
  - B-CELL LYMPHOMA [None]
  - CHRONIC LYMPHOCYTIC LEUKAEMIA [None]
